FAERS Safety Report 5798943-X (Version None)
Quarter: 2008Q3

REPORT INFORMATION
  Report Type: 
  Country: None (occurrence: None)
  Receive Date: 20080701
  Receipt Date: 20080618
  Transmission Date: 20090109
  Serious: Yes (Death)
  Sender: FDA-Public Use
  Company Number: US023891

PATIENT
  Age: 38 Year
  Sex: Female
  Weight: 54.4316 kg

DRUGS (2)
  1. ORAL TRANSMUCOSAL FENTANYL CITRATE [Suspect]
     Indication: NEOPLASM MALIGNANT
     Dosage: 800 UG PRN BUCCAL
     Route: 002
     Dates: end: 20071101
  2. MORPHINE [Concomitant]

REACTIONS (1)
  - NEOPLASM MALIGNANT [None]
